FAERS Safety Report 8492969-3 (Version None)
Quarter: 2012Q3

REPORT INFORMATION
  Report Type: 
  Country: None (occurrence: None)
  Receive Date: 20120706
  Receipt Date: 20120702
  Transmission Date: 20120928
  Serious: Yes (Death)
  Sender: FDA-Public Use
  Company Number: DE-GLAXOSMITHKLINE-D0076071A

PATIENT
  Sex: Male

DRUGS (4)
  1. METOPROLOL [Concomitant]
     Indication: HYPERTENSION
     Dosage: 47MG PER DAY
     Route: 048
  2. VOTRIENT [Suspect]
     Indication: METASTATIC RENAL CELL CARCINOMA
     Dosage: 400MG PER DAY
     Route: 048
  3. SERTRALINE HYDROCHLORIDE [Concomitant]
     Indication: DEPRESSION
     Dosage: 50MG PER DAY
     Route: 048
  4. OPIPRAMOL HYDROCHLORIDE [Concomitant]
     Indication: ANXIETY DISORDER
     Dosage: 50MG PER DAY
     Route: 048

REACTIONS (3)
  - RENAL CANCER [None]
  - LIP DISORDER [None]
  - DYSKINESIA [None]
